FAERS Safety Report 6785758-9 (Version None)
Quarter: 2010Q2

REPORT INFORMATION
  Report Type: 
  Country: None (occurrence: None)
  Receive Date: 20100621
  Receipt Date: 20100621
  Transmission Date: 20101027
  Serious: Yes (Other)
  Sender: FDA-Public Use
  Company Number: None

PATIENT
  Sex: Female
  Weight: 74.8435 kg

DRUGS (11)
  1. CRESTOR [Suspect]
  2. ZOCOR [Suspect]
  3. ATACAND [Suspect]
  4. KLOR CON-TOPROL [Concomitant]
  5. XL-DIOVAN [Concomitant]
  6. VITAMINS [Concomitant]
  7. ASPIRIN [Concomitant]
  8. COQ-10 [Concomitant]
  9. RED YEAST RICE [Concomitant]
  10. ESTRACE [Concomitant]
  11. ALDACTONE [Concomitant]

REACTIONS (2)
  - BLOOD CHOLESTEROL INCREASED [None]
  - DRUG HYPERSENSITIVITY [None]
